FAERS Safety Report 23551813 (Version 1)
Quarter: 2024Q1

REPORT INFORMATION
  Report Type: Spontaneous
  Country: JP (occurrence: JP)
  Receive Date: 20240222
  Receipt Date: 20240222
  Transmission Date: 20240410
  Serious: Yes (Hospitalization, Other)
  Sender: FDA-Public Use
  Company Number: JP-GLAXOSMITHKLINE-JP2024JPN022241

PATIENT

DRUGS (3)
  1. LAMICTAL [Suspect]
     Active Substance: LAMOTRIGINE
     Indication: Seizure
     Dosage: UNK
  2. VALPROATE SODIUM [Concomitant]
     Active Substance: VALPROATE SODIUM
     Indication: Epilepsy
     Dosage: UNK
  3. VALPROATE SODIUM [Concomitant]
     Active Substance: VALPROATE SODIUM
     Indication: Seizure

REACTIONS (9)
  - Drug reaction with eosinophilia and systemic symptoms [Unknown]
  - Altered state of consciousness [Unknown]
  - Disseminated intravascular coagulation [Unknown]
  - Coagulopathy [Unknown]
  - Rash [Unknown]
  - Decreased appetite [Unknown]
  - Pyrexia [Unknown]
  - Rash erythematous [Recovering/Resolving]
  - Lymphadenopathy [Unknown]
